FAERS Safety Report 6888730-3 (Version None)
Quarter: 2010Q3

REPORT INFORMATION
  Report Type: 
  Country: None (occurrence: None)
  Receive Date: 20100730
  Receipt Date: 20071024
  Transmission Date: 20110219
  Serious: No
  Sender: FDA-Public Use
  Company Number: US-PFIZER INC-2007089638

PATIENT
  Sex: Female

DRUGS (2)
  1. LOMOTIL [Suspect]
  2. DIAZIDE [Concomitant]

REACTIONS (1)
  - HYPERSENSITIVITY [None]
